FAERS Safety Report 8271921-7 (Version None)
Quarter: 2012Q1

REPORT INFORMATION
  Report Type: 
  Country: None (occurrence: None)
  Receive Date: 20120321
  Receipt Date: 20110509
  Transmission Date: 20120608
  Serious: Yes (Other)
  Sender: FDA-Public Use
  Company Number: 2011SP021152

PATIENT
  Age: 66 Year
  Sex: Female

DRUGS (1)
  1. PEG-INTRON [Suspect]
     Indication: HEPATITIS C

REACTIONS (5)
  - CHILLS [None]
  - SUICIDAL IDEATION [None]
  - DEPRESSION [None]
  - ANAEMIA [None]
  - WEIGHT DECREASED [None]
